FAERS Safety Report 4740363-0 (Version None)
Quarter: 2005Q3

REPORT INFORMATION
  Report Type: 
  Country: None (occurrence: None)
  Receive Date: 20050809
  Receipt Date: 20050809
  Transmission Date: 20060218
  Serious: Yes (Death, Hospitalization)
  Sender: FDA-Public Use
  Company Number: None

PATIENT
  Sex: Male
  Weight: 106.3 kg

DRUGS (2)
  1. GEMCITABINE [Suspect]
     Indication: PANCREATIC CARCINOMA
     Dosage: SEE IMAGE
     Dates: start: 20040120
  2. IRINOTECAN [Suspect]
     Dosage: SEE IMAGE
     Dates: start: 20040120

REACTIONS (13)
  - DISEASE PROGRESSION [None]
  - GASTROINTESTINAL HAEMORRHAGE [None]
  - HAEMATEMESIS [None]
  - HAEMORRHAGE [None]
  - HYPERHIDROSIS [None]
  - LYMPHADENOPATHY [None]
  - MELAENA [None]
  - METASTATIC NEOPLASM [None]
  - MUCOSAL ULCERATION [None]
  - NAUSEA [None]
  - RECTAL HAEMORRHAGE [None]
  - SMALL INTESTINE CARCINOMA METASTATIC [None]
  - SPLENOMEGALY [None]
